FAERS Safety Report 24775394 (Version 1)
Quarter: 2024Q4

REPORT INFORMATION
  Report Type: Other
  Country: CA (occurrence: CA)
  Receive Date: 20241226
  Receipt Date: 20241226
  Transmission Date: 20250114
  Serious: Yes (Other)
  Sender: GLENMARK
  Company Number: CA-GLENMARK PHARMACEUTICALS-2024GMK096718

PATIENT

DRUGS (6)
  1. GABAPENTIN [Suspect]
     Active Substance: GABAPENTIN
     Indication: Alcohol use disorder
     Dosage: 300 MILLIGRAM, 1 EVERY 8 HOURS
     Route: 065
  2. GABAPENTIN [Suspect]
     Active Substance: GABAPENTIN
     Indication: Generalised anxiety disorder
     Dosage: 200 MILLIGRAM, 1 EVERY 12 HOURS
     Route: 065
  3. GABAPENTIN [Suspect]
     Active Substance: GABAPENTIN
     Indication: Depression
     Dosage: 600 MILLIGRAM
     Route: 065
  4. GABAPENTIN [Suspect]
     Active Substance: GABAPENTIN
     Dosage: 600 MILLIGRAM
     Route: 065
  5. KETAMINE [Suspect]
     Active Substance: KETAMINE
     Indication: Intentional product misuse
     Dosage: UNK
     Route: 045
  6. NALTREXONE [Suspect]
     Active Substance: NALTREXONE
     Indication: Alcohol use disorder
     Dosage: 50 MILLIGRAM, 1 EVERY 1 DAYS
     Route: 065

REACTIONS (4)
  - Gastrointestinal disorder [Unknown]
  - Somnolence [Unknown]
  - Intentional product misuse [Unknown]
  - Product use in unapproved indication [Unknown]
